FAERS Safety Report 8336330-0 (Version None)
Quarter: 2012Q1

REPORT INFORMATION
  Report Type: 
  Country: None (occurrence: None)
  Receive Date: 20120329
  Receipt Date: 20100408
  Transmission Date: 20120608
  Serious: Yes (Other)
  Sender: FDA-Public Use
  Company Number: PHHY2010US20479

PATIENT
  Age: 87 Year
  Sex: Male

DRUGS (5)
  1. ASPIRIN [Suspect]
     Dosage: 81 MG, QD
     Dates: start: 20100201, end: 20100301
  2. IBUPROFEN (ADVIL) [Concomitant]
  3. LISINOPRIL [Concomitant]
  4. EXELON [Suspect]
     Indication: DEMENTIA ALZHEIMER'S TYPE
     Dosage: 4.6;9.5 MG, QD, TRANSDERMAL
     Route: 062
     Dates: start: 20100201, end: 20100301
  5. EXELON [Suspect]
     Indication: DEMENTIA ALZHEIMER'S TYPE
     Dosage: 4.6;9.5 MG, QD, TRANSDERMAL
     Route: 062
     Dates: start: 20100311, end: 20100325

REACTIONS (4)
  - DEPRESSION [None]
  - MEMORY IMPAIRMENT [None]
  - DISEASE PROGRESSION [None]
  - CONFUSIONAL STATE [None]
